FAERS Safety Report 9304436 (Version 1)
Quarter: 2013Q2

REPORT INFORMATION
  Report Type: Spontaneous
  Country: US (occurrence: US)
  Receive Date: 20130522
  Receipt Date: 20130522
  Transmission Date: 20140414
  Serious: Yes (Other)
  Sender: FDA-Public Use
  Company Number: US-ELI_LILLY_AND_COMPANY-US201305004289

PATIENT
  Sex: Female

DRUGS (6)
  1. CYMBALTA [Suspect]
     Indication: FIBROMYALGIA
     Dosage: 30 MG, UNKNOWN
     Route: 065
     Dates: start: 2011
  2. CYMBALTA [Suspect]
     Dosage: 60 MG, UNKNOWN
     Route: 065
  3. CYMBALTA [Suspect]
     Dosage: 30 MG, TID
     Route: 065
     Dates: start: 201304
  4. COUMADIN [Concomitant]
     Dosage: UNK, UNKNOWN
     Route: 065
  5. LEVOTHYROXINE [Concomitant]
     Dosage: 0.125 MG, UNKNOWN
     Route: 065
  6. METOPROLOL TARTRATE [Concomitant]
     Dosage: UNK, UNKNOWN
     Route: 065

REACTIONS (2)
  - Cardiac aneurysm [Unknown]
  - Seasonal allergy [Unknown]
